FAERS Safety Report 11840399 (Version 1)
Quarter: 2015Q4

REPORT INFORMATION
  Report Type: Spontaneous
  Country: US (occurrence: US)
  Receive Date: 20151216
  Receipt Date: 20151216
  Transmission Date: 20160305
  Serious: No
  Sender: FDA-Public Use
  Company Number: US-GALDERMA-US15007752

PATIENT
  Age: 40 Year
  Sex: Female

DRUGS (9)
  1. NARS FOUNDATION [Concomitant]
     Route: 061
  2. CETAPHIL [Concomitant]
     Active Substance: AVOBENZONE\OCTOCRYLENE\TRICLOSAN
     Route: 061
  3. LETMD SKIN CARE MOISTUZIER WITH SUNSCREEN [Concomitant]
     Route: 061
  4. MIRVASO [Suspect]
     Active Substance: BRIMONIDINE TARTRATE
     Indication: ROSACEA
     Dosage: 0.33%
     Route: 061
     Dates: start: 201508, end: 201508
  5. MIRVASO [Suspect]
     Active Substance: BRIMONIDINE TARTRATE
     Dosage: 0.33%
     Route: 061
     Dates: start: 201508, end: 20151013
  6. NEUTROGENA SUNBLOCK [Concomitant]
     Route: 061
  7. MIRVASO [Suspect]
     Active Substance: BRIMONIDINE TARTRATE
     Dosage: 0.33%
     Route: 061
     Dates: start: 20151014
  8. BARE MINERALS MAKE-UP [Concomitant]
  9. CLARITIN [Concomitant]
     Active Substance: LORATADINE
     Dosage: 10 MG
     Route: 048

REACTIONS (1)
  - Drug ineffective [Recovered/Resolved]

NARRATIVE: CASE EVENT DATE: 201508
